FAERS Safety Report 6052219-4 (Version None)
Quarter: 2009Q1

REPORT INFORMATION
  Report Type: 
  Country: None (occurrence: None)
  Receive Date: 20090121
  Receipt Date: 20090107
  Transmission Date: 20090719
  Serious: Yes (Other)
  Sender: FDA-Public Use
  Company Number: RENA-1000348

PATIENT

DRUGS (1)
  1. RENAGEL [Suspect]
     Indication: HYPERPHOSPHATAEMIA
     Dosage: 800 MG,

REACTIONS (5)
  - ACUTE ABDOMEN [None]
  - FLATULENCE [None]
  - HAEMODIALYSIS [None]
  - PERITONEAL DIALYSIS [None]
  - PLEURAL EFFUSION [None]
